FAERS Safety Report 17736698 (Version 7)
Quarter: 2020Q4

REPORT INFORMATION
  Report Type: Report from Study
  Country: None (occurrence: CO)
  Receive Date: 20200501
  Receipt Date: 20201022
  Transmission Date: 20210113
  Serious: Yes (Hospitalization)
  Sender: FDA-Public Use
  Company Number: CO-ABBVIE-20K-036-3387246-00

PATIENT
  Age: 65 Year
  Sex: Female
  Weight: 49 kg

DRUGS (5)
  1. PREDNISOLONE. [Concomitant]
     Active Substance: PREDNISOLONE
     Indication: RHEUMATOID ARTHRITIS
     Route: 048
  2. IRON [Concomitant]
     Active Substance: IRON
     Indication: ARTHRALGIA
  3. METHOTREXATE. [Concomitant]
     Active Substance: METHOTREXATE
     Indication: ARTHRALGIA
  4. HUMIRA [Suspect]
     Active Substance: ADALIMUMAB
     Indication: RHEUMATOID ARTHRITIS
     Route: 058
     Dates: start: 20090921
  5. HUMIRA [Suspect]
     Active Substance: ADALIMUMAB
     Indication: RHEUMATOID ARTHRITIS
     Route: 058
     Dates: end: 20200219

REACTIONS (7)
  - Peripheral swelling [Not Recovered/Not Resolved]
  - Kidney infection [Recovering/Resolving]
  - Lung disorder [Recovering/Resolving]
  - Pulmonary tuberculosis [Recovering/Resolving]
  - Immunosuppression [Recovering/Resolving]
  - Arthralgia [Recovered/Resolved]
  - Thrombosis [Recovering/Resolving]

NARRATIVE: CASE EVENT DATE: 202003
